FAERS Safety Report 8901823 (Version 1)
Quarter: 2012Q4

REPORT INFORMATION
  Report Type: Spontaneous
  Country: US (occurrence: None)
  Receive Date: 20121106
  Receipt Date: 20121106
  Transmission Date: 20130627
  Serious: Yes (Other)
  Sender: FDA-Public Use
  Company Number: AXC-2012-000490

PATIENT
  Sex: Male
  Weight: 61.2 kg

DRUGS (1)
  1. ZENPEP [Suspect]
     Indication: DRUG USE FOR UNKNOWN INDICATION
     Dosage: with meals
     Route: 048

REACTIONS (2)
  - Pancreatic carcinoma [None]
  - Hypophagia [None]
